FAERS Safety Report 13059580 (Version 2)
Quarter: 2022Q4

REPORT INFORMATION
  Report Type: Spontaneous
  Country: ES (occurrence: ES)
  Receive Date: 20161223
  Receipt Date: 20221017
  Transmission Date: 20230113
  Serious: Yes (Hospitalization, Other)
  Sender: FDA-Public Use
  Company Number: ES-GLAXOSMITHKLINE-ES2016GSK189344

PATIENT
  Age: 80 Year
  Sex: Male

DRUGS (17)
  1. CEFUROXIME [Suspect]
     Active Substance: CEFUROXIME
     Indication: Cystitis
  2. REPAGLINIDE [Concomitant]
     Active Substance: REPAGLINIDE
     Indication: Type 2 diabetes mellitus
  3. INSULIN GLARGINE [Concomitant]
     Active Substance: INSULIN GLARGINE
  4. ATORVASTATIN [Concomitant]
     Active Substance: ATORVASTATIN
  5. FUROSEMIDE [Concomitant]
     Active Substance: FUROSEMIDE
     Indication: Hypertension
  6. DOXAZOSIN [Concomitant]
     Active Substance: DOXAZOSIN MESYLATE
  7. AMLODIPINE [Concomitant]
     Active Substance: AMLODIPINE BESYLATE
  8. ACETAMINOPHEN [Concomitant]
     Active Substance: ACETAMINOPHEN
  9. OMEPRAZOLE [Concomitant]
     Active Substance: OMEPRAZOLE
  10. LORMETAZEPAM [Concomitant]
     Active Substance: LORMETAZEPAM
  11. ASPIRIN [Concomitant]
     Active Substance: ASPIRIN
  12. ALLOPURINOL [Concomitant]
     Active Substance: ALLOPURINOL
  13. BISOPROLOL [Concomitant]
     Active Substance: BISOPROLOL
  14. MOXONIDINE [Concomitant]
     Active Substance: MOXONIDINE
  15. IRON [Concomitant]
     Active Substance: IRON
  16. LOSARTAN [Concomitant]
     Active Substance: LOSARTAN
  17. CALCIUM [Concomitant]
     Active Substance: CALCIUM

REACTIONS (1)
  - Cutaneous vasculitis [Unknown]
